FAERS Safety Report 13980180 (Version 1)
Quarter: 2017Q3

REPORT INFORMATION
  Report Type: Report from Study
  Country: DE (occurrence: DE)
  Receive Date: 20170917
  Receipt Date: 20170917
  Transmission Date: 20171128
  Serious: Yes (Hospitalization, Other)
  Sender: FDA-Public Use
  Company Number: PHHO2017DE012812

PATIENT
  Sex: Female
  Weight: 68 kg

DRUGS (3)
  1. BLINDED NO TREATMENT RECEIVED [Suspect]
     Active Substance: INVESTIGATIONAL PRODUCT
     Indication: STILL^S DISEASE
     Dosage: CODE NOT BROKEN
     Route: 058
     Dates: start: 20160310
  2. BLINDED ACZ885 [Suspect]
     Active Substance: CANAKINUMAB
     Indication: STILL^S DISEASE
     Dosage: CODE NOT BROKEN
     Route: 058
     Dates: start: 20160310
  3. BLINDED PLACEBO [Suspect]
     Active Substance: INVESTIGATIONAL PRODUCT
     Indication: STILL^S DISEASE
     Dosage: CODE NOT BROKEN
     Route: 058
     Dates: start: 20160310

REACTIONS (2)
  - Abdominal pain upper [Unknown]
  - Cholecystitis [Recovered/Resolved]

NARRATIVE: CASE EVENT DATE: 20170821
